FAERS Safety Report 10221910 (Version 1)
Quarter: 2014Q2

REPORT INFORMATION
  Report Type: Report from Study
  Country: US (occurrence: US)
  Receive Date: 20140606
  Receipt Date: 20140606
  Transmission Date: 20141212
  Serious: Yes (Other)
  Sender: FDA-Public Use
  Company Number: US-BIOMARINAP-US-2013-101865

PATIENT
  Age: 4 Year
  Sex: Male
  Weight: 11.8 kg

DRUGS (3)
  1. NAGLAZYME [Suspect]
     Indication: MUCOPOLYSACCHARIDOSIS VI
     Dosage: 15 MG, QW
     Route: 041
     Dates: start: 20081023
  2. BENADRYL                           /00000402/ [Concomitant]
     Indication: PREMEDICATION
     Dosage: 11 MG, UNK
     Route: 048
  3. EMLA                               /00675501/ [Concomitant]
     Indication: PREMEDICATION
     Route: 061

REACTIONS (1)
  - Sleep apnoea syndrome [Recovered/Resolved]
